FAERS Safety Report 7915919-4 (Version None)
Quarter: 2011Q4

REPORT INFORMATION
  Report Type: 
  Country: None (occurrence: None)
  Receive Date: 20111115
  Receipt Date: 20111103
  Transmission Date: 20120403
  Serious: Yes (Other)
  Sender: FDA-Public Use
  Company Number: US-ELI_LILLY_AND_COMPANY-US201110005646

PATIENT
  Sex: Female

DRUGS (3)
  1. FORTEO [Suspect]
     Indication: OSTEOPOROSIS
     Dosage: 20 UG, QD
  2. FORTEO [Suspect]
     Dosage: 20 UG, QD
  3. PREDNISONE [Concomitant]
     Indication: PALINDROMIC RHEUMATISM
     Dosage: 5 MG, QD
     Dates: start: 19780101

REACTIONS (5)
  - DIZZINESS [None]
  - INJECTION SITE ERYTHEMA [None]
  - BONE PAIN [None]
  - INSOMNIA [None]
  - WEIGHT DECREASED [None]
